FAERS Safety Report 10450778 (Version 1)
Quarter: 2014Q3

REPORT INFORMATION
  Report Type: Report from Study
  Country: BR (occurrence: BR)
  Receive Date: 20140912
  Receipt Date: 20140912
  Transmission Date: 20150326
  Serious: Yes (Death)
  Sender: FDA-Public Use
  Company Number: PHHY2014BR118176

PATIENT
  Sex: Female

DRUGS (2)
  1. OSTEOFIX [Concomitant]
     Indication: OSTEOPOROSIS
     Dosage: 1 TABLET DAILY
     Dates: start: 2014
  2. ACLASTA [Suspect]
     Active Substance: ZOLEDRONIC ACID
     Indication: OSTEOPOROSIS
     Dosage: ONE TIME YEARLY
     Route: 042
     Dates: start: 2014

REACTIONS (5)
  - Pneumonia [Fatal]
  - Respiratory arrest [Fatal]
  - Cerebrovascular accident [Fatal]
  - Renal failure [Fatal]
  - Infection [Fatal]
